FAERS Safety Report 10767327 (Version 2)
Quarter: 2015Q1

REPORT INFORMATION
  Report Type: Spontaneous
  Country: DE (occurrence: DE)
  Receive Date: 20150205
  Receipt Date: 20150219
  Transmission Date: 20150721
  Serious: Yes (Other)
  Sender: FDA-Public Use
  Company Number: DE-TEVA-537394GER

PATIENT
  Age: 65 Year
  Sex: Female
  Weight: 83 kg

DRUGS (8)
  1. VAGITEM [Concomitant]
     Indication: BLADDER DYSFUNCTION
     Route: 067
     Dates: start: 201203
  2. EXFORGE 10/160 [Concomitant]
     Indication: HYPERTENSION
     Dosage: 1 DOSAGE FORMS DAILY;
     Route: 048
     Dates: start: 200305
  3. L-THYROX HEXAL 75 [Concomitant]
     Indication: HYPOTHYROIDISM
     Dosage: 1 DOSAGE FORMS DAILY;
  4. ATORVASTATIN-RATIOPHARM 20 MG FILMTABLETTEN [Suspect]
     Active Substance: ATORVASTATIN
     Indication: BLOOD CHOLESTEROL INCREASED
     Dosage: 20 MILLIGRAM DAILY; INTAKE IN THE EVENING
     Route: 048
     Dates: start: 20150115, end: 20150121
  5. MOXONIDIN HEXAL 0,2 MG FILMTABLETTEN [Concomitant]
     Indication: HYPERTENSION
     Dosage: .4 MILLIGRAM DAILY;
     Route: 048
     Dates: start: 200305
  6. ASS 100 - 1A PHARMA TAH [Concomitant]
     Indication: BLOOD CHOLESTEROL INCREASED
     Dosage: 100 MILLIGRAM DAILY;
     Route: 048
     Dates: start: 20150103, end: 20150121
  7. TOVIAZ 4 MG [Concomitant]
     Indication: BLADDER DYSFUNCTION
     Dosage: 4 MILLIGRAM DAILY;
     Route: 048
     Dates: start: 201301
  8. METOPROLOL ABZ O.K. 100 MG RETARDTABLETTEN [Concomitant]
     Indication: HYPERTENSION
     Dosage: 50 MILLIGRAM DAILY;
     Route: 048
     Dates: start: 200305

REACTIONS (7)
  - Bacterial infection [Not Recovered/Not Resolved]
  - Micturition urgency [Not Recovered/Not Resolved]
  - Urethral pain [Not Recovered/Not Resolved]
  - Dysuria [Not Recovered/Not Resolved]
  - Cystitis [Not Recovered/Not Resolved]
  - Abdominal pain lower [Not Recovered/Not Resolved]
  - Escherichia infection [Not Recovered/Not Resolved]

NARRATIVE: CASE EVENT DATE: 20150118
